FAERS Safety Report 18937922 (Version 1)
Quarter: 2021Q1

REPORT INFORMATION
  Report Type: Spontaneous
  Country: CA (occurrence: CA)
  Receive Date: 20210224
  Receipt Date: 20210224
  Transmission Date: 20210420
  Serious: Yes (Hospitalization, Other)
  Sender: FDA-Public Use
  Company Number: CA-PFIZER INC-2021170671

PATIENT
  Age: 11 Year
  Sex: Female

DRUGS (4)
  1. BLINCYTO [Concomitant]
     Active Substance: BLINATUMOMAB
     Dosage: UNK
     Route: 042
  2. CYTARABINE INJECTION [Concomitant]
     Active Substance: CYTARABINE
     Dosage: UNK
  3. HYDROCORTISONE. [Concomitant]
     Active Substance: HYDROCORTISONE
     Dosage: UNK
  4. METHOTREXATE SODIUM. [Suspect]
     Active Substance: METHOTREXATE SODIUM
     Indication: CHEMOTHERAPY
     Dosage: UNK
     Route: 037

REACTIONS (3)
  - Toxicity to various agents [Unknown]
  - Nervous system disorder [Unknown]
  - Leukoencephalopathy [Unknown]
